FAERS Safety Report 6343720-4 (Version None)
Quarter: 2009Q3

REPORT INFORMATION
  Report Type: 
  Country: None (occurrence: None)
  Receive Date: 20090908
  Receipt Date: 20090826
  Transmission Date: 20100115
  Serious: Yes (Hospitalization)
  Sender: FDA-Public Use
  Company Number: A0805772A

PATIENT
  Age: 49 Year
  Sex: Female

DRUGS (1)
  1. AVANDAMET [Suspect]
     Indication: TYPE 2 DIABETES MELLITUS
     Route: 048
     Dates: start: 20060103, end: 20070601

REACTIONS (3)
  - CEREBROVASCULAR ACCIDENT [None]
  - NIGHT BLINDNESS [None]
  - VISION BLURRED [None]
